FAERS Safety Report 18478187 (Version 1)
Quarter: 2020Q4

REPORT INFORMATION
  Report Type: Spontaneous
  Country: FR (occurrence: FR)
  Receive Date: 20201108
  Receipt Date: 20201108
  Transmission Date: 20210114
  Serious: Yes (Hospitalization)
  Sender: FDA-Public Use
  Company Number: FR-AUROBINDO-AUR-APL-2020-054862

PATIENT
  Age: 59 Year
  Sex: Female

DRUGS (4)
  1. CARBOPLATIN. [Suspect]
     Active Substance: CARBOPLATIN
     Indication: OVARIAN CANCER
     Dosage: UNK
     Route: 065
  2. CARBOPLATIN. [Suspect]
     Active Substance: CARBOPLATIN
     Indication: METASTASES TO PERITONEUM
     Dosage: UNK (VIA TOTALLY IMPLANTABLE CENTRAL VENOUS ACCESS DEVICE)
     Route: 041
  3. TAXOL [Suspect]
     Active Substance: PACLITAXEL
     Indication: METASTASES TO PERITONEUM
     Dosage: UNK (VIA TOTALLY IMPLANTABLE CENTRAL VENOUS ACCESS DEVICE)
     Route: 041
  4. TAXOL [Suspect]
     Active Substance: PACLITAXEL
     Indication: OVARIAN CANCER
     Dosage: UNK
     Route: 065

REACTIONS (4)
  - Infusion site erythema [Recovering/Resolving]
  - Administration site extravasation [Recovering/Resolving]
  - Infusion site extravasation [Recovering/Resolving]
  - Infusion site pain [Recovering/Resolving]
